FAERS Safety Report 19590428 (Version 1)
Quarter: 2021Q3

REPORT INFORMATION
  Report Type: Not Available
  Country: JP (occurrence: JP)
  Receive Date: 20210722
  Receipt Date: 20210722
  Transmission Date: 20211014
  Serious: Yes (Other)
  Sender: FDA-Public Use
  Company Number: JP-JNJFOC-20210742866

PATIENT
  Age: 55 Year
  Sex: Male

DRUGS (1)
  1. ITRIZOLE [Suspect]
     Active Substance: ITRACONAZOLE
     Indication: PRODUCT USED FOR UNKNOWN INDICATION
     Dosage: DOSE UNKNOWN
     Route: 048
     Dates: start: 201710, end: 201712

REACTIONS (1)
  - Cholestasis [Unknown]
